FAERS Safety Report 13682284 (Version 1)
Quarter: 2017Q2

REPORT INFORMATION
  Report Type: Report from Study
  Country: US (occurrence: US)
  Receive Date: 20170623
  Receipt Date: 20170623
  Transmission Date: 20170830
  Serious: Yes (Hospitalization, Other)
  Sender: FDA-Public Use
  Company Number: US-TEVA-780111USA

PATIENT
  Age: 64 Year
  Sex: Male
  Weight: 115.2 kg

DRUGS (22)
  1. IFOSFAMIDE. [Suspect]
     Active Substance: IFOSFAMIDE
     Dosage: ONCE IVPB
     Route: 042
     Dates: start: 20160117
  2. ETOPOSIDE. [Suspect]
     Active Substance: ETOPOSIDE
     Dosage: 240 MILLIGRAM DAILY;
     Route: 042
     Dates: start: 20170107, end: 20170109
  3. CARBOPLATIN. [Suspect]
     Active Substance: CARBOPLATIN
     Route: 042
     Dates: start: 20161216, end: 20161218
  4. RITUXIMAB [Suspect]
     Active Substance: RITUXIMAB
     Dosage: ONCE IVPB
     Route: 042
     Dates: start: 20161122, end: 20161212
  5. RITUXIMAB [Suspect]
     Active Substance: RITUXIMAB
     Dosage: ONCE IVPB
     Route: 042
     Dates: start: 20161214
  6. FUROSEMIDE. [Concomitant]
     Active Substance: FUROSEMIDE
     Dates: start: 19951101, end: 20170102
  7. IFOSFAMIDE. [Suspect]
     Active Substance: IFOSFAMIDE
     Dosage: ONCE IVPB
     Route: 042
     Dates: start: 20161216, end: 20161218
  8. CARBOPLATIN. [Suspect]
     Active Substance: CARBOPLATIN
     Indication: DIFFUSE LARGE B-CELL LYMPHOMA
     Route: 042
     Dates: start: 20161125
  9. CARBOPLATIN. [Suspect]
     Active Substance: CARBOPLATIN
     Route: 042
     Dates: start: 20160117
  10. IFOSFAMIDE. [Suspect]
     Active Substance: IFOSFAMIDE
     Dosage: ONCE IVPB
     Route: 042
     Dates: start: 20170108
  11. CARBOPLATIN. [Suspect]
     Active Substance: CARBOPLATIN
     Route: 042
     Dates: start: 20161217, end: 20170105
  12. INC8050465 [Suspect]
     Active Substance: INVESTIGATIONAL PRODUCT
     Dosage: 15 MILLIGRAM DAILY;
     Route: 048
     Dates: start: 20161214, end: 20170111
  13. ETOPOSIDE. [Suspect]
     Active Substance: ETOPOSIDE
     Route: 042
     Dates: start: 20161218
  14. ETOPOSIDE. [Suspect]
     Active Substance: ETOPOSIDE
     Route: 042
     Dates: end: 20170105
  15. INC8050465 [Suspect]
     Active Substance: INVESTIGATIONAL PRODUCT
     Indication: DIFFUSE LARGE B-CELL LYMPHOMA
     Dosage: 15 MILLIGRAM DAILY;
     Route: 048
     Dates: start: 20161121, end: 20161213
  16. ETOPOSIDE. [Suspect]
     Active Substance: ETOPOSIDE
     Indication: DIFFUSE LARGE B-CELL LYMPHOMA
     Route: 042
     Dates: start: 20161123, end: 20161216
  17. RITUXIMAB [Suspect]
     Active Substance: RITUXIMAB
     Indication: DIFFUSE LARGE B-CELL LYMPHOMA
     Dosage: ONCE IVPB
     Route: 042
     Dates: start: 20161121
  18. METOPROLOL. [Concomitant]
     Active Substance: METOPROLOL
     Dates: start: 20161213
  19. IFOSFAMIDE. [Suspect]
     Active Substance: IFOSFAMIDE
     Indication: DIFFUSE LARGE B-CELL LYMPHOMA
     Dosage: ONCE IVPB
     Route: 042
     Dates: start: 20161125, end: 20170109
  20. RITUXIMAB [Suspect]
     Active Substance: RITUXIMAB
     Dosage: ONCE IVPB
     Route: 042
     Dates: start: 20170103
  21. IFOSFAMIDE. [Suspect]
     Active Substance: IFOSFAMIDE
     Dosage: ONCE IVPB
     Route: 042
     Dates: start: 20161217, end: 20170105
  22. CARBOPLATIN. [Suspect]
     Active Substance: CARBOPLATIN
     Route: 042
     Dates: start: 20170108, end: 20170109

REACTIONS (5)
  - Dyspnoea [Recovered/Resolved]
  - Atrial flutter [Recovered/Resolved]
  - Atrial fibrillation [Recovered/Resolved]
  - Febrile neutropenia [Recovered/Resolved]
  - Neutropenia [Recovered/Resolved]

NARRATIVE: CASE EVENT DATE: 20170105
